FAERS Safety Report 17728968 (Version 1)
Quarter: 2020Q2

REPORT INFORMATION
  Report Type: Report from Study
  Country: GB (occurrence: GB)
  Receive Date: 20200430
  Receipt Date: 20200430
  Transmission Date: 20200714
  Serious: Yes (Death)
  Sender: FDA-Public Use
  Company Number: GB-MYLANLABS-2020M1042520

PATIENT

DRUGS (11)
  1. DEXTROSE. [Suspect]
     Active Substance: DEXTROSE
     Dosage: ON DAY 1; SCHEDULED TO RECEIVE CHEMOTHERAPY (TWO-WEEKLY SCHEDULE) WITH 14 DAY CYCLE
     Route: 065
  2. DEXAMETHASONE. [Suspect]
     Active Substance: DEXAMETHASONE
     Indication: METASTASES TO LIVER
  3. DEXTROSE. [Suspect]
     Active Substance: DEXTROSE
     Indication: PRODUCT USED FOR UNKNOWN INDICATION
     Dosage: FLUSH LINE, ON DAY 1
     Route: 065
  4. DEXAMETHASONE. [Suspect]
     Active Substance: DEXAMETHASONE
     Indication: COLORECTAL CANCER METASTATIC
     Dosage: ON DAY 1; SCHEDULED TO RECEIVE CHEMOTHERAPY (TWO-WEEKLY SCHEDULE) WITH 14 DAY CYCLE
     Route: 040
  5. HEPARINISED SALINE [Suspect]
     Active Substance: HEPARIN SODIUM
     Indication: PRODUCT USED FOR UNKNOWN INDICATION
     Dosage: 5 MILLILITER FLUSH LINE; ON DAY 2
     Route: 065
  6. DEXTROSE. [Suspect]
     Active Substance: DEXTROSE
     Dosage: FLUSH LINE
     Route: 065
  7. GRANISETRON [Suspect]
     Active Substance: GRANISETRON
     Indication: PRODUCT USED FOR UNKNOWN INDICATION
     Dosage: ON DAY 1; SCHEDULED TO RECEIVE CHEMOTHERAPY (TWO-WEEKLY SCHEDULE) WITH 14 DAY CYCLE..
     Route: 040
  8. FLUOROURACIL. [Suspect]
     Active Substance: FLUOROURACIL
     Indication: COLORECTAL CANCER METASTATIC
     Dosage: ON DAY 1; SCHEDULED TO RECEIVE CHEMOTHERAPY (TWO-WEEKLY SCHEDULE) WITH 14 DAY CYCLE
     Route: 040
  9. FLUOROURACIL. [Suspect]
     Active Substance: FLUOROURACIL
     Indication: METASTASES TO LIVER
     Dosage: ON DAY 1-2; SCHEDULED TO RECEIVE CHEMOTHERAPY (TWO-WEEKLY SCHEDULE) WITH 14 DAY CYCLE
     Route: 042
  10. FOLINIC ACID [Suspect]
     Active Substance: LEUCOVORIN
     Indication: COLORECTAL CANCER METASTATIC
     Dosage: ON DAY 1; SCHEDULED TO RECEIVE CHEMOTHERAPY (TWO-WEEKLY SCHEDULE) WITH 14 DAY CYCLE
     Route: 042
  11. FOLINIC ACID [Suspect]
     Active Substance: LEUCOVORIN
     Indication: METASTASES TO LIVER

REACTIONS (1)
  - Cardiac failure [Fatal]
